FAERS Safety Report 19436295 (Version 2)
Quarter: 2025Q1

REPORT INFORMATION
  Report Type: Spontaneous
  Country: US (occurrence: US)
  Receive Date: 20210618
  Receipt Date: 20250117
  Transmission Date: 20250409
  Serious: No
  Sender: BIOGEN
  Company Number: US-BIOGEN-2021BI01021478

PATIENT
  Sex: Female

DRUGS (10)
  1. VUMERITY [Suspect]
     Active Substance: DIROXIMEL FUMARATE
     Indication: Multiple sclerosis
     Route: 050
     Dates: start: 20201023
  2. TYLENOL [Concomitant]
     Active Substance: ACETAMINOPHEN
     Route: 050
  3. OXYBUTYNIN CHLORIDE [Concomitant]
     Active Substance: OXYBUTYNIN CHLORIDE
     Route: 050
  4. LAMOTRIGINE [Concomitant]
     Active Substance: LAMOTRIGINE
     Route: 050
  5. DILTIAZEM [Concomitant]
     Active Substance: DILTIAZEM
     Route: 050
  6. ATORVASTATIN CALCIUM [Concomitant]
     Active Substance: ATORVASTATIN CALCIUM
     Route: 050
  7. LOSARTAN POTASSIUM [Concomitant]
     Active Substance: LOSARTAN POTASSIUM
     Route: 050
  8. ASPIRIN [Concomitant]
     Active Substance: ASPIRIN
     Route: 050
  9. HYDROCHLOROTHIAZIDE [Concomitant]
     Active Substance: HYDROCHLOROTHIAZIDE
     Route: 050
  10. MELATONIN [Concomitant]
     Active Substance: MELATONIN
     Route: 050

REACTIONS (9)
  - Product dose omission issue [Unknown]
  - Loss of consciousness [Unknown]
  - Limb injury [Unknown]
  - Multiple sclerosis [Unknown]
  - Temperature intolerance [Unknown]
  - Head injury [Unknown]
  - Strabismus [Unknown]
  - Fall [Recovered/Resolved]
  - Vision blurred [Unknown]
